FAERS Safety Report 21753075 (Version 4)
Quarter: 2023Q1

REPORT INFORMATION
  Report Type: Report from Study
  Country: US (occurrence: US)
  Receive Date: 20221220
  Receipt Date: 20230216
  Transmission Date: 20230418
  Serious: Yes (Other)
  Sender: FDA-Public Use
  Company Number: US-ABBVIE-4242419

PATIENT
  Age: 77 Year
  Sex: Female
  Weight: 95.2 kg

DRUGS (1)
  1. HUMIRA [Suspect]
     Active Substance: ADALIMUMAB
     Indication: Rheumatoid arthritis
     Route: 058

REACTIONS (4)
  - Spinal operation [Not Recovered/Not Resolved]
  - Nasopharyngitis [Recovering/Resolving]
  - Pain [Not Recovered/Not Resolved]
  - Spinal operation [Recovered/Resolved]

NARRATIVE: CASE EVENT DATE: 20220829
